FAERS Safety Report 6108446-0 (Version None)
Quarter: 2009Q1

REPORT INFORMATION
  Report Type: 
  Country: None (occurrence: None)
  Receive Date: 20090309
  Receipt Date: 20090305
  Transmission Date: 20090719
  Serious: No
  Sender: FDA-Public Use
  Company Number: US-B.I. PHARMACEUTICALS,INC./RIDGEFIELD-2009-BP-00766BP

PATIENT
  Age: 86 Year
  Sex: Male

DRUGS (6)
  1. FLOMAX [Suspect]
     Indication: BENIGN PROSTATIC HYPERPLASIA
     Dosage: .4MG
     Route: 048
     Dates: start: 20090120, end: 20090120
  2. FLOMAX [Suspect]
     Indication: POLLAKIURIA
  3. KLOR-CON M10 [Concomitant]
  4. LISINOPRIL [Concomitant]
  5. ISOSORB MONO [Concomitant]
  6. FUROSEMIDE [Concomitant]

REACTIONS (7)
  - ASTHENIA [None]
  - DIARRHOEA [None]
  - DIZZINESS [None]
  - DYSPNOEA [None]
  - FAECAL INCONTINENCE [None]
  - VISION BLURRED [None]
  - VOMITING [None]
